FAERS Safety Report 14769466 (Version 1)
Quarter: 2018Q2

REPORT INFORMATION
  Report Type: Report from Study
  Country: None (occurrence: IL)
  Receive Date: 20180417
  Receipt Date: 20180417
  Transmission Date: 20180711
  Serious: Yes (Hospitalization)
  Sender: FDA-Public Use
  Company Number: IL-ABBVIE-18K-082-2239260-00

PATIENT
  Age: 76 Year
  Sex: Female

DRUGS (1)
  1. DUODOPA [Suspect]
     Active Substance: CARBIDOPA\LEVODOPA
     Indication: PARKINSON^S DISEASE
     Dosage: MORNING DOSE:8ML, ?CONTINUES RATE:2.5ML/HOUR,?ED: 1ML
     Route: 050
     Dates: end: 20180129

REACTIONS (4)
  - Loss of personal independence in daily activities [Unknown]
  - Renal mass [Unknown]
  - Back pain [Unknown]
  - Nephrectomy [Unknown]

NARRATIVE: CASE EVENT DATE: 20180129
